FAERS Safety Report 4931423-X (Version None)
Quarter: 2006Q1

REPORT INFORMATION
  Report Type: 
  Country: None (occurrence: None)
  Receive Date: 20060228
  Receipt Date: 20060216
  Transmission Date: 20060701
  Serious: Yes (Life-Threatening)
  Sender: FDA-Public Use
  Company Number: 2006025108

PATIENT

DRUGS (1)
  1. SERTRALINE [Suspect]
     Indication: ILL-DEFINED DISORDER
     Dosage: PLACENTAL

REACTIONS (3)
  - DRUG EXPOSURE DURING PREGNANCY [None]
  - NEONATAL RESPIRATORY FAILURE [None]
  - PERSISTENT FOETAL CIRCULATION [None]
